FAERS Safety Report 4385147-0 (Version None)
Quarter: 2004Q2

REPORT INFORMATION
  Report Type: 
  Country: None (occurrence: None)
  Receive Date: 20040624
  Receipt Date: 20040624
  Transmission Date: 20050107
  Serious: Yes (Hospitalization)
  Sender: FDA-Public Use
  Company Number: None

PATIENT
  Age: 76 Year
  Sex: Male
  Weight: 73.2 kg

DRUGS (4)
  1. GEMCITABINE [Suspect]
     Indication: RENAL CELL CARCINOMA STAGE UNSPECIFIED
     Dosage: 1810 MG IV D1-8
     Route: 042
     Dates: start: 20040610
  2. GEMCITABINE [Suspect]
     Indication: RENAL CELL CARCINOMA STAGE UNSPECIFIED
     Dosage: 1810 MG IV D1-8
     Route: 042
     Dates: start: 20040617
  3. IRINOTECAN [Suspect]
     Indication: RENAL CELL CARCINOMA STAGE UNSPECIFIED
     Dosage: 181 MG IV D1-8
     Route: 042
     Dates: start: 20040610
  4. IRINOTECAN [Suspect]
     Indication: RENAL CELL CARCINOMA STAGE UNSPECIFIED
     Dosage: 181 MG IV D1-8
     Route: 042
     Dates: start: 20040617

REACTIONS (6)
  - DEHYDRATION [None]
  - FATIGUE [None]
  - FULL BLOOD COUNT ABNORMAL [None]
  - INTERNATIONAL NORMALISED RATIO INCREASED [None]
  - LETHARGY [None]
  - NAUSEA [None]
